FAERS Safety Report 4991514-4 (Version None)
Quarter: 2006Q2

REPORT INFORMATION
  Report Type: 
  Country: None (occurrence: None)
  Receive Date: 20060502
  Receipt Date: 20060419
  Transmission Date: 20061013
  Serious: Yes (Hospitalization)
  Sender: FDA-Public Use
  Company Number: 2005-02256

PATIENT
  Age: 47 Year
  Sex: Female
  Weight: 61 kg

DRUGS (6)
  1. VELCADE [Suspect]
     Indication: PLASMACYTOMA
     Dosage: 2.30 MG, INTRAVENOUS
     Route: 042
     Dates: start: 20050909, end: 20051010
  2. FLUOXETINE HCL [Concomitant]
  3. EFECTIN       (VENLAFAXINE HYDROCHLORIDE) [Concomitant]
  4. FORTECORTIN [Concomitant]
  5. ESTRADIOL [Concomitant]
  6. NORETHISTERONE (NORETHISTERONE) TABLET [Concomitant]

REACTIONS (4)
  - ASCITES [None]
  - DIARRHOEA [None]
  - ENTEROCOLITIS HAEMORRHAGIC [None]
  - PERICARDIAL DISEASE [None]
